FAERS Safety Report 4341870-5 (Version None)
Quarter: 2004Q2

REPORT INFORMATION
  Report Type: 
  Country: None (occurrence: None)
  Receive Date: 20040415
  Receipt Date: 20040331
  Transmission Date: 20050107
  Serious: Yes (Life-Threatening, Hospitalization)
  Sender: FDA-Public Use
  Company Number: GBS040314578

PATIENT
  Age: 77 Year
  Sex: Female
  Weight: 67 kg

DRUGS (9)
  1. HUMULIN 70/30 [Suspect]
     Indication: DIABETES MELLITUS
     Dosage: 36 IU
  2. ALLOPURINOL [Concomitant]
  3. ASPIRIN [Concomitant]
  4. TRAMADOL HCL [Concomitant]
  5. TEMAZEPAM [Concomitant]
  6. LATANOPROST [Concomitant]
  7. CREON [Concomitant]
  8. FUROSEMIDE [Concomitant]
  9. AMLODIPINE BESYLATE [Concomitant]

REACTIONS (2)
  - HYPERGLYCAEMIA [None]
  - PHARMACEUTICAL PRODUCT COMPLAINT [None]
